FAERS Safety Report 6149896-6 (Version None)
Quarter: 2009Q2

REPORT INFORMATION
  Report Type: 
  Country: None (occurrence: None)
  Receive Date: 20090409
  Receipt Date: 20090403
  Transmission Date: 20091009
  Serious: Yes (Hospitalization)
  Sender: FDA-Public Use
  Company Number: NL-B.I. PHARMACEUTICALS,INC./RIDGEFIELD-2009-NL-00218NL

PATIENT
  Sex: Male

DRUGS (2)
  1. ATROVENT [Suspect]
     Dosage: 8PUF
  2. SERETIDE [Concomitant]

REACTIONS (1)
  - CHEST DISCOMFORT [None]
